FAERS Safety Report 21151182 (Version 1)
Quarter: 2022Q3

REPORT INFORMATION
  Report Type: Spontaneous
  Country: FR (occurrence: FR)
  Receive Date: 20220730
  Receipt Date: 20220730
  Transmission Date: 20221027
  Serious: Yes (Life-Threatening, Hospitalization)
  Sender: FDA-Public Use
  Company Number: None

PATIENT
  Age: 63 Year
  Sex: Female
  Weight: 55 kg

DRUGS (4)
  1. CARBOPLATIN [Suspect]
     Active Substance: CARBOPLATIN
     Indication: Ovarian cancer metastatic
     Dosage: 427MG, FREQUENCY TIME 3WEEKS, DURATION 48DAYS
     Route: 065
     Dates: start: 20220415, end: 20220602
  2. GEMCITABINE [Suspect]
     Active Substance: GEMCITABINE
     Indication: Ovarian cancer metastatic
     Dosage: 1550MG, FREQUENCY TIME 1WEEKS, DURATION 7DAYS
     Route: 065
     Dates: start: 20220415, end: 20220422
  3. LENOGRASTIM [Suspect]
     Active Substance: LENOGRASTIM
     Indication: Ovarian cancer metastatic
     Dosage: STRENGTH:34 MILLION IU, POWDER AND SOLVENT IN PRE-FILLED SYRINGE FOR SOLUTION FOR INJECTION OR INFUS
     Route: 065
     Dates: start: 20220423, end: 20220427
  4. PIPERACILLIN SODIUM\TAZOBACTAM SODIUM [Suspect]
     Active Substance: PIPERACILLIN SODIUM\TAZOBACTAM SODIUM
     Indication: Febrile bone marrow aplasia
     Dosage: 4GM, FREQUENCY TIME 8HRS, DURATION 10DAYS
     Route: 065
     Dates: start: 20220425, end: 20220505

REACTIONS (4)
  - Pulmonary alveolar haemorrhage [Unknown]
  - Cerebral haemorrhage [Unknown]
  - Immune thrombocytopenia [Recovering/Resolving]
  - Febrile bone marrow aplasia [Recovered/Resolved]

NARRATIVE: CASE EVENT DATE: 20220426
